FAERS Safety Report 5253215-7 (Version None)
Quarter: 2007Q1

REPORT INFORMATION
  Report Type: 
  Country: None (occurrence: None)
  Receive Date: 20070301
  Receipt Date: 20070220
  Transmission Date: 20070707
  Serious: Yes (Other)
  Sender: FDA-Public Use
  Company Number: 2007UW03433

PATIENT
  Age: 86 Year
  Sex: Male

DRUGS (1)
  1. ZOLADEX [Suspect]
     Indication: PROSTATE CANCER
     Route: 058

REACTIONS (4)
  - ARTHRITIS [None]
  - HOT FLUSH [None]
  - INSOMNIA [None]
  - PROSTATIC SPECIFIC ANTIGEN INCREASED [None]
